FAERS Safety Report 16528215 (Version 1)
Quarter: 2019Q3

REPORT INFORMATION
  Report Type: Spontaneous
  Country: US (occurrence: US)
  Receive Date: 20190704
  Receipt Date: 20190704
  Transmission Date: 20191004
  Serious: No
  Sender: FDA-Public Use
  Company Number: US-GW PHARMA-201903USGW0822

PATIENT

DRUGS (8)
  1. EPIDIOLEX [Suspect]
     Active Substance: CANNABIDIOL
     Indication: MUSCLE SPASMS
     Dosage: 60 MILLIGRAM, BID
     Route: 048
     Dates: start: 20181229
  2. EPIDIOLEX [Interacting]
     Active Substance: CANNABIDIOL
     Indication: EPILEPSY
  3. EPIDIOLEX [Interacting]
     Active Substance: CANNABIDIOL
     Indication: SIMPLE PARTIAL SEIZURES
  4. CLOBAZAM. [Concomitant]
     Active Substance: CLOBAZAM
     Indication: PRODUCT USED FOR UNKNOWN INDICATION
     Dosage: 2.5 MG/ML
     Route: 065
  5. VIGABATRIN. [Concomitant]
     Active Substance: VIGABATRIN
     Indication: PRODUCT USED FOR UNKNOWN INDICATION
     Dosage: 500 MILLIGRAM, FORMULATION: POWDER
     Route: 065
  6. EPIDIOLEX [Interacting]
     Active Substance: CANNABIDIOL
     Indication: PARTIAL SEIZURES
  7. EPIDIOLEX [Interacting]
     Active Substance: CANNABIDIOL
     Indication: EPILEPSY
  8. LEVETIRACETAM. [Concomitant]
     Active Substance: LEVETIRACETAM
     Indication: PRODUCT USED FOR UNKNOWN INDICATION
     Dosage: 100MG/ML
     Route: 065

REACTIONS (2)
  - Drug interaction [Unknown]
  - Fatigue [Unknown]

NARRATIVE: CASE EVENT DATE: 20190327
